FAERS Safety Report 9549465 (Version 1)
Quarter: 2013Q3

REPORT INFORMATION
  Report Type: Report from Study
  Country: US (occurrence: US)
  Receive Date: 20130924
  Receipt Date: 20130924
  Transmission Date: 20140515
  Serious: Yes (Hospitalization, Other)
  Sender: FDA-Public Use
  Company Number: US-ABBVIE-13P-163-1148560-00

PATIENT
  Sex: Male

DRUGS (3)
  1. HUMIRA [Suspect]
     Indication: CROHN^S DISEASE
     Dates: start: 201301
  2. PENTASA [Concomitant]
     Indication: CROHN^S DISEASE
  3. ALBUTEROL [Concomitant]
     Indication: ASTHMA
     Dosage: INHALER

REACTIONS (4)
  - Gastrointestinal inflammation [Unknown]
  - Crohn^s disease [Recovering/Resolving]
  - Incorrect product storage [Unknown]
  - Diarrhoea [Unknown]
